FAERS Safety Report 21326911 (Version 1)
Quarter: 2022Q3

REPORT INFORMATION
  Report Type: Spontaneous
  Country: US (occurrence: US)
  Receive Date: 20220913
  Receipt Date: 20220913
  Transmission Date: 20221027
  Serious: Yes (Hospitalization)
  Sender: FDA-Public Use
  Company Number: US-Melinta Therapeutics, LLC-US-MLNT-22-00145

PATIENT
  Sex: Male

DRUGS (2)
  1. ORBACTIV [Suspect]
     Active Substance: ORITAVANCIN
     Indication: Product used for unknown indication
     Dosage: NOT PROVIDED.
     Route: 041
  2. BENADRYL [Concomitant]
     Active Substance: DIPHENHYDRAMINE HYDROCHLORIDE
     Indication: Product used for unknown indication
     Dosage: NOT PROVIDED.
     Route: 048

REACTIONS (7)
  - Pallor [Unknown]
  - Chills [Unknown]
  - Back pain [Unknown]
  - Nausea [Unknown]
  - Headache [Unknown]
  - Dizziness [Unknown]
  - Hypotension [Unknown]
